FAERS Safety Report 7825355-7 (Version None)
Quarter: 2011Q4

REPORT INFORMATION
  Report Type: 
  Country: None (occurrence: None)
  Receive Date: 20111019
  Receipt Date: 20111013
  Transmission Date: 20120403
  Serious: Yes (Life-Threatening, Hospitalization, Other)
  Sender: FDA-Public Use
  Company Number: PHHY2011BR78890

PATIENT
  Sex: Female
  Weight: 81 kg

DRUGS (8)
  1. AMITRIPTYLINE HCL [Concomitant]
     Indication: HEADACHE
  2. ACETAMINOPHEN/CLONAZEPAM [Concomitant]
     Indication: PAIN
  3. NEURONTIN [Concomitant]
     Indication: NEUROPATHY PERIPHERAL
  4. MODURETIC 5-50 [Concomitant]
     Indication: BLOOD PRESSURE
  5. RISPERIDONE [Suspect]
     Dosage: 1 MG, 1/2 TABLET ONCE A DAY (AT NIGHT)
     Route: 048
     Dates: start: 20110810
  6. ALPRAZOLAM [Concomitant]
     Indication: SLEEP DISORDER
  7. VITALUX PLUS [Concomitant]
  8. CALCIUM CARBONATE [Concomitant]
     Indication: BONE DISORDER

REACTIONS (6)
  - TREMOR [None]
  - SWOLLEN TONGUE [None]
  - EPILEPSY [None]
  - PAIN [None]
  - ABASIA [None]
  - SPINAL FRACTURE [None]
